FAERS Safety Report 6569336-2 (Version None)
Quarter: 2010Q1

REPORT INFORMATION
  Report Type: 
  Country: None (occurrence: None)
  Receive Date: 20100129
  Receipt Date: 20100121
  Transmission Date: 20100710
  Serious: Yes (Death, Hospitalization, Other)
  Sender: FDA-Public Use
  Company Number: THYR-1000236

PATIENT
  Age: 63 Year
  Sex: Male

DRUGS (10)
  1. THYROGEN [Suspect]
     Indication: THERAPEUTIC PROCEDURE
     Dosage: 0.9 MG, QD, INTRAMUSCULAR
     Route: 030
     Dates: start: 20091130, end: 20091201
  2. MORPHINE [Concomitant]
  3. ALLEGRA [Concomitant]
  4. LOTREL (AMLODIPINE BESILATE) [Concomitant]
  5. CLONAZEPAM [Concomitant]
  6. BISTOLIC (BISTOLIC) [Concomitant]
  7. HYDROCHLOROTHIAZIDE [Concomitant]
  8. TEKTURNA (TEKTURNA) [Concomitant]
  9. NIACIN [Concomitant]
  10. OMEPRAZOLE [Concomitant]

REACTIONS (14)
  - ALANINE AMINOTRANSFERASE INCREASED [None]
  - ATRIAL FIBRILLATION [None]
  - BLOOD BILIRUBIN INCREASED [None]
  - CARDIAC FAILURE CONGESTIVE [None]
  - HYPERTENSION [None]
  - HYPERTHYROIDISM [None]
  - HYPOTENSION [None]
  - LIVER FUNCTION TEST ABNORMAL [None]
  - METASTASES TO BONE [None]
  - METASTASES TO LIVER [None]
  - METASTASES TO LUNG [None]
  - PLEURAL EFFUSION [None]
  - RENAL FAILURE [None]
  - TACHYCARDIA [None]
